FAERS Safety Report 9110335 (Version 1)
Quarter: 2013Q1

REPORT INFORMATION
  Report Type: Report from Study
  Country: US (occurrence: US)
  Receive Date: 20130222
  Receipt Date: 20130222
  Transmission Date: 20140127
  Serious: Yes (Hospitalization, Other)
  Sender: FDA-Public Use
  Company Number: US-ROCHE-1179665

PATIENT
  Age: 59 Year
  Sex: Male
  Weight: 70.5 kg

DRUGS (3)
  1. BEVACIZUMAB [Suspect]
     Indication: NON-SMALL CELL LUNG CANCER
     Dosage: OVER 30-90 MIN ON DAY1, LAST ADMINISTERED DATE: 12/OCT/2012
     Route: 042
     Dates: start: 20121012
  2. CISPLATIN [Suspect]
     Indication: NON-SMALL CELL LUNG CANCER
     Dosage: OVER 60 MIN ON DAY-1, LAST ADMINISTERED DATE: 09/NOV/2012
     Route: 042
     Dates: start: 20121012
  3. GEMCITABINE [Suspect]
     Indication: NON-SMALL CELL LUNG CANCER
     Dosage: OVER 30 MIN ON DAY-1 AND DAY-8, LAST ADMINISTERED DATE: 16/NOV/2012
     Route: 042
     Dates: start: 20121012

REACTIONS (2)
  - Embolism [Not Recovered/Not Resolved]
  - Peripheral ischaemia [Not Recovered/Not Resolved]
